FAERS Safety Report 19991940 (Version 1)
Quarter: 2021Q4

REPORT INFORMATION
  Report Type: Spontaneous
  Country: US (occurrence: US)
  Receive Date: 20211025
  Receipt Date: 20211025
  Transmission Date: 20220303
  Serious: Yes (Other)
  Sender: FDA-Public Use
  Company Number: US-PFIZER INC-202101361754

PATIENT
  Age: 60 Year
  Sex: Female

DRUGS (1)
  1. IBRANCE [Suspect]
     Active Substance: PALBOCICLIB
     Dosage: UNK
     Dates: start: 20170813, end: 20200301

REACTIONS (5)
  - Neutropenia [Unknown]
  - Arthralgia [Unknown]
  - Hot flush [Unknown]
  - Dry skin [Unknown]
  - Nausea [Unknown]

NARRATIVE: CASE EVENT DATE: 20170815
